FAERS Safety Report 6845240-7 (Version None)
Quarter: 2010Q3

REPORT INFORMATION
  Report Type: 
  Country: None (occurrence: None)
  Receive Date: 20100715
  Receipt Date: 20070819
  Transmission Date: 20110219
  Serious: No
  Sender: FDA-Public Use
  Company Number: US-PFIZER INC-2007069547

PATIENT
  Sex: Male

DRUGS (8)
  1. CHANTIX [Suspect]
     Indication: SMOKING CESSATION THERAPY
  2. CHOLESTEROL- AND TRIGLYCERIDE REDUCERS [Concomitant]
     Indication: BLOOD CHOLESTEROL INCREASED
  3. LISINOPRIL [Concomitant]
     Indication: HYPERTENSION
  4. DEPAKOTE [Concomitant]
  5. SEROQUEL [Concomitant]
  6. LUNESTA [Concomitant]
     Indication: INSOMNIA
  7. INSULIN ASPART/PROTAMINE [Concomitant]
     Indication: DIABETES MELLITUS
  8. PRILOSEC [Concomitant]
     Indication: GALLBLADDER OPERATION

REACTIONS (1)
  - NIGHTMARE [None]
